FAERS Safety Report 5316734-0 (Version None)
Quarter: 2007Q2

REPORT INFORMATION
  Report Type: 
  Country: None (occurrence: None)
  Receive Date: 20070504
  Receipt Date: 20070425
  Transmission Date: 20071010
  Serious: Yes (Hospitalization)
  Sender: FDA-Public Use
  Company Number: 2007AP02508

PATIENT
  Age: 72 Year
  Sex: Female

DRUGS (5)
  1. XYLOCAINE [Suspect]
     Indication: SURGERY
     Dates: start: 20070409, end: 20070409
  2. OPEGAN [Suspect]
     Dates: start: 20070409, end: 20070409
  3. OPEGUARD-MA [Suspect]
     Dates: start: 20070409, end: 20070409
  4. LEVOFLOXACIN [Suspect]
     Dates: start: 20070409, end: 20070409
  5. VISCOAT [Suspect]
     Dates: start: 20070409, end: 20070409

REACTIONS (1)
  - CORNEAL OEDEMA [None]
